FAERS Safety Report 7241785-9 (Version None)
Quarter: 2011Q1

REPORT INFORMATION
  Report Type: 
  Country: None (occurrence: None)
  Receive Date: 20110114
  Receipt Date: 20110111
  Transmission Date: 20110831
  Serious: Yes (Hospitalization)
  Sender: FDA-Public Use
  Company Number: JHP201100001

PATIENT
  Age: 41 Year
  Sex: Female

DRUGS (3)
  1. ADRENALIN CHLORIDE SOLUTION (EPINEPHRINE) NASAL, 1MG/ML [Suspect]
     Dosage: 5  ADRENALINE-SOAKED PLEDGETTES (1:1000) TO NASAL MUCOSA FOR 3-5 MINUTES, TOPICAL
     Route: 061
  2. XYLOMETAZOLINE HYDROCHLORIDE (XYLOMETAZOLINE HYDROCHLORIDE) AEROSAL (S [Suspect]
     Dosage: NASAL SPRAY, TOPICAL
     Route: 061
  3. GENERAL ANESTHESIA [Concomitant]

REACTIONS (2)
  - MYDRIASIS [None]
  - POST PROCEDURAL COMPLICATION [None]
